FAERS Safety Report 11913487 (Version 1)
Quarter: 2016Q1

REPORT INFORMATION
  Report Type: Report from Study
  Country: PL (occurrence: PL)
  Receive Date: 20160113
  Receipt Date: 20160113
  Transmission Date: 20160526
  Serious: Yes (Other)
  Sender: FDA-Public Use
  Company Number: PHHY2016PL001223

PATIENT
  Age: 7 Year
  Sex: Male

DRUGS (2)
  1. EXJADE [Suspect]
     Active Substance: DEFERASIROX
     Indication: APLASTIC ANAEMIA
     Dosage: 20 MG/KG, QD
     Route: 065
     Dates: start: 20141128, end: 20141214
  2. EXJADE [Suspect]
     Active Substance: DEFERASIROX
     Dosage: 20 MG/KG, QD
     Route: 065
     Dates: start: 20150416

REACTIONS (7)
  - Abdominal pain [Unknown]
  - Pneumonia cytomegaloviral [Unknown]
  - Diarrhoea [Unknown]
  - Serum ferritin increased [Unknown]
  - Graft versus host disease [Unknown]
  - Cystitis haemorrhagic [Unknown]
  - Off label use [Unknown]
